FAERS Safety Report 13986166 (Version 1)
Quarter: 2017Q3

REPORT INFORMATION
  Report Type: Report from Study
  Country: FR (occurrence: FR)
  Receive Date: 20170919
  Receipt Date: 20170919
  Transmission Date: 20171128
  Serious: Yes (Other)
  Sender: FDA-Public Use
  Company Number: PHHY2013FR087704

PATIENT
  Age: 60 Year
  Sex: Female
  Weight: 50 kg

DRUGS (13)
  1. METOPIMAZINE [Concomitant]
     Active Substance: METOPIMAZINE
     Indication: NAUSEA
     Dosage: 2 DF, QD
     Route: 065
     Dates: start: 20130715
  2. METOPIMAZINE [Concomitant]
     Active Substance: METOPIMAZINE
     Indication: VOMITING
  3. GAVISCON [Concomitant]
     Active Substance: ALUMINUM HYDROXIDE\MAGNESIUM CARBONATE
     Indication: PRODUCT USED FOR UNKNOWN INDICATION
     Dosage: 2 DF, QD
     Route: 065
  4. MIDOSTAURIN [Suspect]
     Active Substance: MIDOSTAURIN
     Dosage: 100 MG, BID
     Route: 048
     Dates: start: 201403, end: 201410
  5. CARDENSIEL [Concomitant]
     Active Substance: BISOPROLOL FUMARATE
     Indication: PRODUCT USED FOR UNKNOWN INDICATION
     Dosage: UNK UNK, QD
     Route: 065
  6. KARDEGIC [Concomitant]
     Active Substance: ASPIRIN LYSINE
     Indication: PRODUCT USED FOR UNKNOWN INDICATION
     Dosage: 75 MG, QD
     Route: 065
  7. MIDOSTAURIN [Suspect]
     Active Substance: MIDOSTAURIN
     Indication: SYSTEMIC MASTOCYTOSIS
     Dosage: 100 MG, BID
     Route: 048
     Dates: start: 20130708, end: 20130912
  8. MIDOSTAURIN [Suspect]
     Active Substance: MIDOSTAURIN
     Dosage: 200 MG, QD (125 MG IN THE MORNING AND 75 MG IN THE EVENING)
     Route: 048
     Dates: start: 201311, end: 201403
  9. MIDOSTAURIN [Suspect]
     Active Substance: MIDOSTAURIN
     Dosage: 75 MG, BID
     Route: 048
     Dates: start: 201410
  10. RANITIDINE. [Concomitant]
     Active Substance: RANITIDINE
     Indication: PRODUCT USED FOR UNKNOWN INDICATION
     Dosage: UNK UNK, QD
     Route: 065
  11. MIDOSTAURIN [Suspect]
     Active Substance: MIDOSTAURIN
     Dosage: 100 MG, BID
     Route: 048
     Dates: start: 20131008, end: 201311
  12. PARACETAMOL [Concomitant]
     Active Substance: ACETAMINOPHEN
     Indication: PAIN
     Dosage: 1 G, TID
     Route: 065
  13. MIDOSTAURIN [Suspect]
     Active Substance: MIDOSTAURIN
     Dosage: 100 MG, QD
     Route: 048
     Dates: start: 20170502

REACTIONS (4)
  - Ventricular extrasystoles [Recovered/Resolved]
  - Nausea [Not Recovered/Not Resolved]
  - Vomiting [Recovering/Resolving]
  - Hepatocellular injury [Recovered/Resolved]

NARRATIVE: CASE EVENT DATE: 20130708
